FAERS Safety Report 7042428-X (Version None)
Quarter: 2010Q4

REPORT INFORMATION
  Report Type: 
  Country: None (occurrence: None)
  Receive Date: 20101013
  Receipt Date: 20100422
  Transmission Date: 20110411
  Serious: No
  Sender: FDA-Public Use
  Company Number: US-ASTRAZENECA-2010SE12796

PATIENT
  Age: 795 Month
  Sex: Female
  Weight: 62.6 kg

DRUGS (5)
  1. SYMBICORT [Suspect]
     Indication: CHRONIC OBSTRUCTIVE PULMONARY DISEASE
     Dosage: 80/4.5 TWO PUFFS DAILY BID
     Route: 055
     Dates: start: 20090101
  2. SEROQUEL [Concomitant]
  3. SPIRIVA [Concomitant]
  4. DIAZEPAM [Concomitant]
  5. HERBAL MEDICATION [Concomitant]

REACTIONS (1)
  - DYSPNOEA [None]
